FAERS Safety Report 17028786 (Version 1)
Quarter: 2019Q4

REPORT INFORMATION
  Report Type: Spontaneous
  Country: US (occurrence: US)
  Receive Date: 20191114
  Receipt Date: 20191114
  Transmission Date: 20200122
  Serious: Yes (Other)
  Sender: FDA-Public Use
  Company Number: US-ROCHE-2460709

PATIENT
  Sex: Female

DRUGS (1)
  1. XOLAIR [Suspect]
     Active Substance: OMALIZUMAB
     Indication: CHRONIC SPONTANEOUS URTICARIA
     Dosage: SUBCUTANEOUS - BENEATH THE SKIN, USUALLY VIA INJECTION
     Route: 058
     Dates: start: 20190816, end: 20191011

REACTIONS (1)
  - Ketosis [Unknown]
